FAERS Safety Report 12239892 (Version 2)
Quarter: 2017Q1

REPORT INFORMATION
  Report Type: Spontaneous
  Country: US (occurrence: US)
  Receive Date: 20160405
  Receipt Date: 20170316
  Transmission Date: 20170428
  Serious: No
  Sender: FDA-Public Use
  Company Number: US-ROCHE-1633606

PATIENT
  Sex: Male

DRUGS (1)
  1. ERIVEDGE [Suspect]
     Active Substance: VISMODEGIB
     Indication: BASAL CELL CARCINOMA
     Route: 048
     Dates: start: 20150220

REACTIONS (6)
  - Weight decreased [Unknown]
  - Alopecia [Unknown]
  - Ageusia [Unknown]
  - Muscle spasms [Unknown]
  - Arthralgia [Unknown]
  - Decreased appetite [Unknown]
